FAERS Safety Report 5578738-2 (Version None)
Quarter: 2007Q4

REPORT INFORMATION
  Report Type: 
  Country: None (occurrence: None)
  Receive Date: 20071227
  Receipt Date: 20071211
  Transmission Date: 20080405
  Serious: Yes (Other)
  Sender: FDA-Public Use
  Company Number: 8028655

PATIENT
  Age: 13 Year
  Sex: Female
  Weight: 45 kg

DRUGS (2)
  1. XUSAL [Suspect]
     Dosage: 100 MG ONCE PO
     Route: 048
     Dates: start: 20071211, end: 20071211
  2. ZOPICLONE [Suspect]
     Dosage: 30 MG ONCE PO
     Route: 048
     Dates: start: 20071211, end: 20071211

REACTIONS (6)
  - DRUG TOXICITY [None]
  - FATIGUE [None]
  - GASTROINTESTINAL SOUNDS ABNORMAL [None]
  - INCORRECT DOSE ADMINISTERED [None]
  - SOMNOLENCE [None]
  - SUICIDE ATTEMPT [None]
